FAERS Safety Report 25785561 (Version 2)
Quarter: 2025Q4

REPORT INFORMATION
  Report Type: Spontaneous
  Country: US (occurrence: US)
  Receive Date: 20250910
  Receipt Date: 20251006
  Transmission Date: 20260117
  Serious: No
  Sender: AUROBINDO
  Company Number: US-AUROBINDO-AUR-APL-2025-039850

PATIENT
  Sex: Female

DRUGS (1)
  1. MOMETASONE FUROATE MONOHYDRATE [Suspect]
     Active Substance: MOMETASONE FUROATE MONOHYDRATE
     Indication: Seasonal allergy
     Dosage: ONCE IN A DAY (ONE SPRAY IN EACH NOSTRIL)
     Route: 045

REACTIONS (2)
  - Product administration error [Unknown]
  - Product odour abnormal [Recovered/Resolved]
